FAERS Safety Report 19764696 (Version 3)
Quarter: 2023Q2

REPORT INFORMATION
  Report Type: Spontaneous
  Country: US (occurrence: US)
  Receive Date: 20210830
  Receipt Date: 20230616
  Transmission Date: 20230722
  Serious: Yes (Other)
  Sender: FDA-Public Use
  Company Number: US-GILEAD-2021-0545392

PATIENT
  Age: 48 Year
  Sex: Female
  Weight: 87.982 kg

DRUGS (55)
  1. TRUVADA [Suspect]
     Active Substance: EMTRICITABINE\TENOFOVIR DISOPROXIL FUMARATE
     Indication: HIV infection
     Dosage: UNK
     Route: 048
     Dates: start: 2008
  2. TRUVADA [Suspect]
     Active Substance: EMTRICITABINE\TENOFOVIR DISOPROXIL FUMARATE
     Dosage: UNK
     Route: 048
     Dates: start: 2005, end: 201608
  3. DESCOVY [Concomitant]
     Active Substance: EMTRICITABINE\TENOFOVIR ALAFENAMIDE FUMARATE
  4. SYMTUZA [Concomitant]
     Active Substance: COBICISTAT\DARUNAVIR\EMTRICITABINE\TENOFOVIR ALAFENAMIDE
  5. KALETRA [Concomitant]
     Active Substance: LOPINAVIR\RITONAVIR
  6. SEROQUEL [Concomitant]
     Active Substance: QUETIAPINE FUMARATE
  7. FISH OIL [Concomitant]
     Active Substance: FISH OIL
  8. ISENTRESS [Concomitant]
     Active Substance: RALTEGRAVIR POTASSIUM
  9. NORVIR [Concomitant]
     Active Substance: RITONAVIR
  10. PIFELTRO [Concomitant]
     Active Substance: DORAVIRINE
  11. PREZISTA [Concomitant]
     Active Substance: DARUNAVIR ETHANOLATE
  12. TIVICAY [Concomitant]
     Active Substance: DOLUTEGRAVIR SODIUM
  13. ZERIT [Concomitant]
     Active Substance: STAVUDINE
  14. SULFAMETHOXAZOLE AND TRIMETHOPRIM [Concomitant]
     Active Substance: SULFAMETHOXAZOLE\TRIMETHOPRIM
  15. VITAMIN D2 [Concomitant]
     Active Substance: ERGOCALCIFEROL
  16. DOXEPIN [Concomitant]
     Active Substance: DOXEPIN
  17. VENTOLIN HFA [Concomitant]
     Active Substance: ALBUTEROL SULFATE
  18. AMOXICILLIN [Concomitant]
     Active Substance: AMOXICILLIN
  19. CHLORHEXIDINE [Concomitant]
     Active Substance: CHLORHEXIDINE
  20. FLUCONAZOLE [Concomitant]
     Active Substance: FLUCONAZOLE
  21. RITONAVIR [Concomitant]
     Active Substance: RITONAVIR
  22. LEVOFLOXACIN [Concomitant]
     Active Substance: LEVOFLOXACIN
  23. METRONIDAZOLE [Concomitant]
     Active Substance: METRONIDAZOLE
  24. TRIAMCINOLONE [Concomitant]
     Active Substance: TRIAMCINOLONE
  25. AZELASTINE [Concomitant]
     Active Substance: AZELASTINE
  26. ZITHROMAX [Concomitant]
     Active Substance: AZITHROMYCIN DIHYDRATE
  27. ADVAIR HFA [Concomitant]
     Active Substance: FLUTICASONE PROPIONATE\SALMETEROL XINAFOATE
  28. MOTRIN [Concomitant]
     Active Substance: IBUPROFEN
  29. BACTRIM DS [Concomitant]
     Active Substance: SULFAMETHOXAZOLE\TRIMETHOPRIM
  30. CLARITIN [Concomitant]
     Active Substance: LORATADINE
  31. DIFLUCAN [Concomitant]
     Active Substance: FLUCONAZOLE
  32. PROAIR HFA [Concomitant]
     Active Substance: ALBUTEROL SULFATE
  33. DULCOLAX (BISACODYL) [Concomitant]
     Active Substance: BISACODYL
  34. CEFIXIME [Concomitant]
     Active Substance: CEFIXIME
  35. LIDEX [Concomitant]
     Active Substance: FLUOCINONIDE
  36. MICONAZOLE NITRATE [Concomitant]
     Active Substance: MICONAZOLE NITRATE
  37. VITAMINS [Concomitant]
     Active Substance: VITAMINS
  38. IRON [Concomitant]
     Active Substance: IRON
  39. ERGOCALCIFEROL [Concomitant]
     Active Substance: ERGOCALCIFEROL
  40. ULTRAM [Concomitant]
     Active Substance: TRAMADOL HYDROCHLORIDE
  41. FLONASE [Concomitant]
     Active Substance: FLUTICASONE PROPIONATE
  42. AURALGAN [ACETIC ACID;BENZOCAINE;GLYCEROL;PHENAZONE;POLICOSANOL] [Concomitant]
  43. CALCIUM\CHOLECALCIFEROL [Concomitant]
     Active Substance: CALCIUM\CHOLECALCIFEROL
  44. DOCUSATE SODIUM [Concomitant]
     Active Substance: DOCUSATE SODIUM
  45. ROBAXIN [Concomitant]
     Active Substance: METHOCARBAMOL
  46. HYDROCODONE BITARTRATE AND ACETAMINOPHEN [Concomitant]
     Active Substance: ACETAMINOPHEN\HYDROCODONE BITARTRATE
  47. FLUCINONIDE [Concomitant]
  48. LIPITOR [Concomitant]
     Active Substance: ATORVASTATIN CALCIUM
  49. MUCINEX [Concomitant]
     Active Substance: GUAIFENESIN
  50. MUPIROCIN [Concomitant]
     Active Substance: MUPIROCIN
  51. DIAZEPAM [Concomitant]
     Active Substance: DIAZEPAM
  52. CHANTIX [Concomitant]
     Active Substance: VARENICLINE TARTRATE
  53. ASPIRIN [Concomitant]
     Active Substance: ASPIRIN
  54. NAPROXEN [Concomitant]
     Active Substance: NAPROXEN
  55. TESSALON [Concomitant]
     Active Substance: BENZONATATE

REACTIONS (21)
  - Chronic kidney disease [Not Recovered/Not Resolved]
  - Osteoporosis [Unknown]
  - Multiple fractures [Unknown]
  - Bone density decreased [Unknown]
  - Pain [Not Recovered/Not Resolved]
  - Emotional distress [Not Recovered/Not Resolved]
  - Anxiety [Not Recovered/Not Resolved]
  - Anhedonia [Not Recovered/Not Resolved]
  - Glomerular filtration rate decreased [Unknown]
  - Osteopenia [Not Recovered/Not Resolved]
  - Humerus fracture [Not Recovered/Not Resolved]
  - Foot fracture [Unknown]
  - Vitamin D deficiency [Unknown]
  - Foot fracture [Unknown]
  - Foot fracture [Unknown]
  - Fall [Recovered/Resolved]
  - Gait inability [Not Recovered/Not Resolved]
  - Osteoarthritis [Unknown]
  - Arthralgia [Unknown]
  - Hypoaesthesia [Unknown]
  - Blood creatinine increased [Unknown]

NARRATIVE: CASE EVENT DATE: 20130501
